FAERS Safety Report 5368875-X (Version None)
Quarter: 2007Q2

REPORT INFORMATION
  Report Type: 
  Country: None (occurrence: None)
  Receive Date: 20070625
  Receipt Date: 20061113
  Transmission Date: 20071010
  Serious: Yes (Hospitalization)
  Sender: FDA-Public Use
  Company Number: US-ASTRAZENECA-2006UW11124

PATIENT
  Age: 79 Year
  Sex: Male

DRUGS (8)
  1. CRESTOR [Suspect]
     Route: 048
  2. OROXADIN [Concomitant]
     Route: 048
  3. NEXIUM [Concomitant]
     Route: 048
  4. PROZAC [Concomitant]
     Route: 048
  5. HYZAAR [Concomitant]
     Route: 048
  6. PLAVIX [Concomitant]
     Route: 048
  7. ZYLOPRIM [Concomitant]
     Route: 048
  8. LOPRESSOR [Concomitant]
     Route: 048

REACTIONS (2)
  - BLOOD CREATINE PHOSPHOKINASE INCREASED [None]
  - RHABDOMYOLYSIS [None]
